FAERS Safety Report 4828745-X (Version None)
Quarter: 2005Q4

REPORT INFORMATION
  Report Type: 
  Country: None (occurrence: None)
  Receive Date: 20051115
  Receipt Date: 20051104
  Transmission Date: 20060501
  Serious: Yes (Hospitalization, Other)
  Sender: FDA-Public Use
  Company Number: PHEH2005US12247

PATIENT
  Age: 58 Year
  Sex: Male

DRUGS (1)
  1. STARLIX [Suspect]
     Indication: DIABETES MELLITUS
     Dosage: UNK, TID
     Route: 048

REACTIONS (3)
  - ANGIOPLASTY [None]
  - CORONARY ARTERY SURGERY [None]
  - MYOCARDIAL INFARCTION [None]
